FAERS Safety Report 7246781-3 (Version None)
Quarter: 2011Q1

REPORT INFORMATION
  Report Type: 
  Country: None (occurrence: None)
  Receive Date: 20110127
  Receipt Date: 20110119
  Transmission Date: 20110831
  Serious: Yes (Other)
  Sender: FDA-Public Use
  Company Number: FR-AMGEN-FRASP2011003952

PATIENT
  Age: 50 Year
  Sex: Female

DRUGS (2)
  1. ENBREL [Suspect]
     Indication: ANKYLOSING SPONDYLITIS
     Dosage: 50 MG, WEEKLY
     Dates: start: 20101220
  2. INDOCIN [Concomitant]
     Dosage: 3 CAPS PER DAY FOR 2 MONTHS

REACTIONS (11)
  - WHEEZING [None]
  - FEELING COLD [None]
  - MOUTH HAEMORRHAGE [None]
  - FATIGUE [None]
  - EYELID OEDEMA [None]
  - VOMITING [None]
  - HEADACHE [None]
  - DIARRHOEA [None]
  - URTICARIA [None]
  - PHARYNGEAL OEDEMA [None]
  - EPISTAXIS [None]
